FAERS Safety Report 4951592-5 (Version None)
Quarter: 2006Q1

REPORT INFORMATION
  Report Type: 
  Country: None (occurrence: None)
  Receive Date: 20060323
  Receipt Date: 20060314
  Transmission Date: 20060701
  Serious: Yes (Hospitalization)
  Sender: FDA-Public Use
  Company Number: 2006AP01295

PATIENT
  Age: 68 Year
  Sex: Male

DRUGS (3)
  1. ARIMIDEX [Suspect]
     Indication: BREAST CANCER
     Route: 048
     Dates: start: 20050901, end: 20060315
  2. DEPAKENE [Concomitant]
     Route: 048
     Dates: end: 20060315
  3. ALEVIATIN [Concomitant]
     Route: 048
     Dates: end: 20060315

REACTIONS (1)
  - INTERSTITIAL LUNG DISEASE [None]
